FAERS Safety Report 15269012 (Version 3)
Quarter: 2018Q3

REPORT INFORMATION
  Report Type: Spontaneous
  Country: MX (occurrence: MX)
  Receive Date: 20180813
  Receipt Date: 20180827
  Transmission Date: 20181010
  Serious: Yes (Hospitalization, Other)
  Sender: FDA-Public Use
  Company Number: MX-ALEXION PHARMACEUTICALS INC.-A201810352

PATIENT
  Age: 48 Year
  Sex: Female

DRUGS (2)
  1. SOLIRIS [Suspect]
     Active Substance: ECULIZUMAB
     Dosage: 1200 MG
     Route: 042
     Dates: start: 20151105
  2. SOLIRIS [Suspect]
     Active Substance: ECULIZUMAB
     Indication: ATYPICAL HAEMOLYTIC URAEMIC SYNDROME
     Dosage: 900 MG
     Route: 042
     Dates: start: 20151016, end: 20151105

REACTIONS (4)
  - Blood creatinine increased [Unknown]
  - Gastroenteritis Escherichia coli [Recovering/Resolving]
  - Hypotension [Unknown]
  - Decreased appetite [Unknown]
